FAERS Safety Report 9407485 (Version 1)
Quarter: 2013Q3

REPORT INFORMATION
  Report Type: Spontaneous
  Country: IT (occurrence: IT)
  Receive Date: 20130718
  Receipt Date: 20130718
  Transmission Date: 20140515
  Serious: Yes (Other)
  Sender: FDA-Public Use
  Company Number: IT-ASTRAZENECA-2013SE51860

PATIENT
  Age: 14603 Day
  Sex: Female

DRUGS (2)
  1. SEROQUEL [Suspect]
     Indication: MENTAL DISORDER
     Route: 048
     Dates: start: 20130615, end: 20130616
  2. SEROQUEL [Suspect]
     Indication: MENTAL DISORDER
     Route: 048

REACTIONS (4)
  - Bradyphrenia [Recovering/Resolving]
  - Hypotension [Recovering/Resolving]
  - Sedation [Recovering/Resolving]
  - Somnolence [Recovering/Resolving]
